FAERS Safety Report 5215403-5 (Version None)
Quarter: 2007Q1

REPORT INFORMATION
  Report Type: 
  Country: None (occurrence: None)
  Receive Date: 20070116
  Receipt Date: 20070103
  Transmission Date: 20070707
  Serious: Yes (Death, Other)
  Sender: FDA-Public Use
  Company Number: 151496ISR

PATIENT
  Age: 66 Year
  Sex: Male

DRUGS (4)
  1. DIAZEPAM [Suspect]
     Dosage: 4 MG (4 MG, 1 IN 1 D)
  2. ZOPICLONE [Suspect]
     Dosage: 7.5 MG (7.5 MG, 1 IN 1 D) ORAL
     Route: 048
  3. OXYCODONE HCL [Suspect]
     Dosage: 80 MG (40 MG, 2 IN 1 D) ORAL
     Route: 048
  4. OXYCODONE HCL [Suspect]
     Indication: CANCER PAIN
     Dosage: ORAL
     Route: 048
     Dates: start: 20060616

REACTIONS (4)
  - CONFUSIONAL STATE [None]
  - HALLUCINATION [None]
  - INSOMNIA [None]
  - LOWER RESPIRATORY TRACT INFECTION [None]
